FAERS Safety Report 10047516 (Version 1)
Quarter: 2014Q1

REPORT INFORMATION
  Report Type: Spontaneous
  Country: US (occurrence: US)
  Receive Date: 20140331
  Receipt Date: 20140331
  Transmission Date: 20141002
  Serious: Yes (Other)
  Sender: FDA-Public Use
  Company Number: US-SA-2014SA036805

PATIENT
  Sex: Male
  Weight: 86.18 kg

DRUGS (11)
  1. PLAVIX [Suspect]
     Indication: MYOCARDIAL INFARCTION
     Route: 065
  2. FOLIC ACID [Concomitant]
  3. LIPITOR [Concomitant]
  4. NEXIUM [Concomitant]
  5. BENICAR [Concomitant]
  6. COENZA Q [Concomitant]
  7. VITAMIN C [Concomitant]
  8. CALCIUM [Concomitant]
  9. VITAMIN E [Concomitant]
  10. MULTIVITAMINS [Concomitant]
  11. HYDROCODONE [Concomitant]

REACTIONS (5)
  - Skin cancer [Unknown]
  - Gastrooesophageal reflux disease [Unknown]
  - Drug dose omission [Unknown]
  - Bone disorder [Unknown]
  - Osteoarthritis [Unknown]
